FAERS Safety Report 7278130-9 (Version None)
Quarter: 2011Q1

REPORT INFORMATION
  Report Type: 
  Country: None (occurrence: None)
  Receive Date: 20110207
  Receipt Date: 20110203
  Transmission Date: 20110831
  Serious: Yes (Hospitalization)
  Sender: FDA-Public Use
  Company Number: A0788928A

PATIENT
  Age: 57 Year
  Sex: Female
  Weight: 55.9 kg

DRUGS (1)
  1. AVANDIA [Suspect]
     Dosage: 4MG TWICE PER DAY
     Route: 048
     Dates: start: 20060629, end: 20070501

REACTIONS (3)
  - CARDIAC DISORDER [None]
  - PALPITATIONS [None]
  - MYOCARDIAL INFARCTION [None]
